FAERS Safety Report 9464327 (Version 2)
Quarter: 2013Q3

REPORT INFORMATION
  Report Type: Report from Study
  Country: US (occurrence: US)
  Receive Date: 20130819
  Receipt Date: 20130819
  Transmission Date: 20140515
  Serious: Yes (Hospitalization)
  Sender: FDA-Public Use
  Company Number: PHHO2011US17046

PATIENT
  Age: 87 Year
  Sex: Female
  Weight: 77.4 kg

DRUGS (3)
  1. ACLASTA/ZOLEDRONATE [Suspect]
     Indication: OSTEOPOROSIS
     Dosage: 5 MG, UNK
     Dates: start: 20081219, end: 20101220
  2. CALTRATE [Concomitant]
     Indication: OSTEOPOROSIS
     Dosage: 600 MG, BID
     Route: 048
     Dates: start: 2001
  3. VITAMIN D [Concomitant]
     Indication: OSTEOPOROSIS
     Dosage: 400 MG, BID
     Route: 048
     Dates: start: 2001

REACTIONS (3)
  - Pelvic fracture [Not Recovered/Not Resolved]
  - Disease progression [Not Recovered/Not Resolved]
  - Pubis fracture [Recovering/Resolving]
